FAERS Safety Report 17566996 (Version 3)
Quarter: 2020Q3

REPORT INFORMATION
  Report Type: Report from Study
  Country: US (occurrence: US)
  Receive Date: 20200320
  Receipt Date: 20200722
  Transmission Date: 20201102
  Serious: Yes (Hospitalization)
  Sender: FDA-Public Use
  Company Number: US-JNJFOC-20200319260

PATIENT
  Age: 15 Year
  Sex: Male
  Weight: 48.3 kg

DRUGS (6)
  1. INFLIXIMAB, RECOMBINANT [Suspect]
     Active Substance: INFLIXIMAB
     Indication: INFLAMMATORY BOWEL DISEASE
     Route: 042
     Dates: start: 20100710
  2. FOLIC ACID. [Concomitant]
     Active Substance: FOLIC ACID
  3. ZOFRAN [Concomitant]
     Active Substance: ONDANSETRON HYDROCHLORIDE
  4. ABILIFY [Concomitant]
     Active Substance: ARIPIPRAZOLE
  5. METHOTREXATE. [Concomitant]
     Active Substance: METHOTREXATE
  6. CHOLECALCIFEROL [Concomitant]
     Active Substance: CHOLECALCIFEROL

REACTIONS (1)
  - Perirectal abscess [Recovered/Resolved]

NARRATIVE: CASE EVENT DATE: 20200224
